FAERS Safety Report 19248860 (Version 2)
Quarter: 2021Q3

REPORT INFORMATION
  Report Type: Report from Study
  Country: US (occurrence: US)
  Receive Date: 20210512
  Receipt Date: 20210810
  Transmission Date: 20211014
  Serious: Yes (Other)
  Sender: FDA-Public Use
  Company Number: US-GW PHARMA-202105USGW02254

PATIENT

DRUGS (1)
  1. EPIDIOLEX [Suspect]
     Active Substance: CANNABIDIOL
     Indication: PRODUCT USED FOR UNKNOWN INDICATION
     Dosage: UNK
     Route: 048
     Dates: start: 20200504, end: 20210421

REACTIONS (2)
  - Peripheral swelling [Recovered/Resolved]
  - Change in seizure presentation [Recovered/Resolved with Sequelae]

NARRATIVE: CASE EVENT DATE: 20210416
